FAERS Safety Report 5416895-9 (Version None)
Quarter: 2007Q3

REPORT INFORMATION
  Report Type: 
  Country: None (occurrence: None)
  Receive Date: 20070816
  Receipt Date: 20070809
  Transmission Date: 20080115
  Serious: Yes (Other)
  Sender: FDA-Public Use
  Company Number: DE-PFIZER INC-2007065748

PATIENT
  Age: 75 Year
  Sex: Female

DRUGS (1)
  1. CELEBREX [Suspect]
     Dosage: DAILY DOSE:200MG
     Route: 048

REACTIONS (2)
  - INSOMNIA [None]
  - PHARYNGEAL OEDEMA [None]
